FAERS Safety Report 14032743 (Version 3)
Quarter: 2018Q2

REPORT INFORMATION
  Report Type: Report from Study
  Country: US (occurrence: US)
  Receive Date: 20171002
  Receipt Date: 20180531
  Transmission Date: 20180711
  Serious: Yes (Hospitalization, Other)
  Sender: FDA-Public Use
  Company Number: US-ARIAD-2017US008826

PATIENT
  Sex: Female

DRUGS (2)
  1. PONATINIB [Suspect]
     Active Substance: PONATINIB
     Dosage: 30 MG, QD
     Route: 048
     Dates: start: 20170619
  2. PONATINIB [Suspect]
     Active Substance: PONATINIB
     Indication: ACUTE LYMPHOCYTIC LEUKAEMIA
     Dosage: 45 MG, QD
     Route: 048
     Dates: start: 201706

REACTIONS (49)
  - Depression [Unknown]
  - Cytopenia [Unknown]
  - Hypogammaglobulinaemia [Unknown]
  - Aspartate aminotransferase increased [Unknown]
  - Pruritus [Unknown]
  - Oral candidiasis [Unknown]
  - Anxiety [Unknown]
  - Tachycardia [Unknown]
  - Epistaxis [Unknown]
  - Dyspnoea [Unknown]
  - Blood creatinine increased [Unknown]
  - Hypokalaemia [Unknown]
  - Contusion [Unknown]
  - Eustachian tube dysfunction [Unknown]
  - Oropharyngeal pain [Unknown]
  - Decreased appetite [Unknown]
  - Nausea [Unknown]
  - Vision blurred [Unknown]
  - Weight increased [Unknown]
  - Haemoglobin decreased [Unknown]
  - Blood urea increased [Unknown]
  - Dental caries [Unknown]
  - Thrombocytopenia [Unknown]
  - Stem cell transplant [Unknown]
  - Infusion site erythema [Recovered/Resolved]
  - Carbon dioxide decreased [Unknown]
  - Cellulitis [Recovered/Resolved]
  - Dysgeusia [Unknown]
  - Hypertension [Unknown]
  - Constipation [Unknown]
  - Renal failure [Unknown]
  - Cardiac disorder [Unknown]
  - Chronic graft versus host disease [Unknown]
  - Blood chloride increased [Unknown]
  - Asthenia [Unknown]
  - Neuropathy peripheral [Unknown]
  - Anaemia [Unknown]
  - Alanine aminotransferase increased [Unknown]
  - Blood count abnormal [Unknown]
  - Toxicity to various agents [Unknown]
  - Vitamin D deficiency [Unknown]
  - Haematocrit decreased [Unknown]
  - Chest pain [Unknown]
  - Rash [Unknown]
  - Blood albumin decreased [Unknown]
  - Ecchymosis [Unknown]
  - Dry eye [Unknown]
  - Dry skin [Unknown]
  - Abdominal distension [Unknown]
